FAERS Safety Report 9356013 (Version 1)
Quarter: 2013Q2

REPORT INFORMATION
  Report Type: Spontaneous
  Country: US (occurrence: US)
  Receive Date: 20130619
  Receipt Date: 20130619
  Transmission Date: 20140414
  Serious: Yes (Other)
  Sender: FDA-Public Use
  Company Number: US-JNJFOC-20130607750

PATIENT
  Sex: Female

DRUGS (7)
  1. REMICADE [Suspect]
     Indication: CROHN^S DISEASE
     Route: 042
  2. REMICADE [Suspect]
     Indication: CROHN^S DISEASE
     Dosage: FOR 8-10 YEARS
     Route: 042
  3. REMICADE [Suspect]
     Indication: CROHN^S DISEASE
     Dosage: BEGAN IN 2002 OR 2004
     Route: 042
  4. REMICADE [Suspect]
     Indication: CROHN^S DISEASE
     Route: 042
     Dates: start: 201304
  5. REMICADE [Suspect]
     Indication: CROHN^S DISEASE
     Route: 042
     Dates: start: 201303
  6. PREDNISONE [Suspect]
     Indication: PRODUCT USED FOR UNKNOWN INDICATION
     Route: 065
     Dates: start: 20130607
  7. PREDNISONE [Suspect]
     Indication: PRODUCT USED FOR UNKNOWN INDICATION
     Route: 065

REACTIONS (4)
  - Joint swelling [Not Recovered/Not Resolved]
  - Arthropathy [Not Recovered/Not Resolved]
  - Pyrexia [Unknown]
  - Drug effect decreased [Not Recovered/Not Resolved]
